FAERS Safety Report 6657929-3 (Version None)
Quarter: 2010Q1

REPORT INFORMATION
  Report Type: 
  Country: None (occurrence: None)
  Receive Date: 20100330
  Receipt Date: 20100322
  Transmission Date: 20100710
  Serious: Yes (Hospitalization)
  Sender: FDA-Public Use
  Company Number: BR-ROCHE-693483

PATIENT
  Sex: Male
  Weight: 71 kg

DRUGS (2)
  1. ROACUTAN [Suspect]
     Indication: ACNE
     Dosage: THERAPY SUSPENDED FOR 15 DAYS
     Route: 065
     Dates: start: 20090901
  2. ROACUTAN [Suspect]
     Route: 065

REACTIONS (3)
  - DENGUE FEVER [None]
  - ERYTHEMA [None]
  - INFLAMMATION [None]
